FAERS Safety Report 4528508-9 (Version None)
Quarter: 2004Q4

REPORT INFORMATION
  Report Type: 
  Country: None (occurrence: None)
  Receive Date: 20041216
  Receipt Date: 20031201
  Transmission Date: 20050328
  Serious: No
  Sender: FDA-Public Use
  Company Number: US-BRISTOL-MYERS SQUIBB COMPANY-12447777

PATIENT
  Age: 51 Year
  Sex: Female
  Weight: 67 kg

DRUGS (4)
  1. QUESTRAN [Suspect]
     Indication: GASTROINTESTINAL DISORDER
     Route: 048
     Dates: start: 19960101
  2. TIMOLOL MALEATE [Concomitant]
     Dosage: DOSAGE FORM = TABLETS
  3. ELAVIL [Concomitant]
  4. CLIMARA [Concomitant]
     Dosage: DOSAGE FORM = PATCH
     Route: 062

REACTIONS (1)
  - MIGRAINE [None]
